FAERS Safety Report 10388443 (Version 1)
Quarter: 2014Q3

REPORT INFORMATION
  Report Type: Report from Study
  Country: US (occurrence: US)
  Receive Date: 20140815
  Receipt Date: 20140815
  Transmission Date: 20150326
  Serious: Yes (Hospitalization)
  Sender: FDA-Public Use
  Company Number: PHEH2014US016031

PATIENT
  Sex: Female
  Weight: 48.98 kg

DRUGS (3)
  1. TOBI PODHALER [Suspect]
     Active Substance: TOBRAMYCIN
     Indication: CYSTIC FIBROSIS
     Dosage: 112 MG, BID
     Route: 055
     Dates: start: 2013, end: 2013
  2. TOBI PODHALER [Suspect]
     Active Substance: TOBRAMYCIN
     Indication: PSEUDOMONAS INFECTION
  3. CAYSTON [Concomitant]
     Active Substance: AZTREONAM
     Dosage: UNK UKN, UNK

REACTIONS (2)
  - Chest discomfort [Unknown]
  - Increased viscosity of nasal secretion [Unknown]
